FAERS Safety Report 9170602 (Version 1)
Quarter: 2013Q1

REPORT INFORMATION
  Report Type: Spontaneous
  Country: US (occurrence: None)
  Receive Date: 20130315
  Receipt Date: 20130315
  Transmission Date: 20140127
  Serious: Yes (Other)
  Sender: FDA-Public Use
  Company Number: None

PATIENT
  Age: 51 Year
  Sex: Male
  Weight: 83.92 kg

DRUGS (1)
  1. LEVOFLOXACIN [Suspect]
     Indication: PANCREATITIS
     Dosage: LESS THAN 20 ML
     Route: 041
     Dates: start: 20130314, end: 20130314

REACTIONS (2)
  - Infusion site pain [None]
  - Infusion site erythema [None]
